FAERS Safety Report 6088657-3 (Version None)
Quarter: 2009Q1

REPORT INFORMATION
  Report Type: 
  Country: None (occurrence: None)
  Receive Date: 20090217
  Receipt Date: 20090217
  Transmission Date: 20090719
  Serious: No
  Sender: FDA-Public Use
  Company Number: None

PATIENT
  Age: 65 Year
  Sex: Female
  Weight: 78.9259 kg

DRUGS (1)
  1. NSF OR NFD GADOLINIUM [Suspect]
     Indication: VASCULAR IMAGING
     Dates: start: 20081119, end: 20081119

REACTIONS (6)
  - DIZZINESS [None]
  - DRY MOUTH [None]
  - HAEMORRHAGE [None]
  - MYALGIA [None]
  - SOMNOLENCE [None]
  - VISUAL IMPAIRMENT [None]
